FAERS Safety Report 9734569 (Version 1)
Quarter: 2013Q4

REPORT INFORMATION
  Report Type: Report from Study
  Country: US (occurrence: US)
  Receive Date: 20131206
  Receipt Date: 20131206
  Transmission Date: 20140711
  Serious: Yes (Hospitalization)
  Sender: FDA-Public Use
  Company Number: US-ROCHE-1309772

PATIENT
  Age: 64 Year
  Sex: Female

DRUGS (10)
  1. HERCEPTIN [Suspect]
     Indication: BREAST CANCER
     Dosage: MOST RECENT DOSE ON 18/NOV/2013,
     Route: 042
     Dates: start: 20130911
  2. PERJETA [Suspect]
     Indication: BREAST CANCER
     Route: 065
  3. PACLITAXEL [Concomitant]
     Indication: BREAST CANCER
     Route: 042
     Dates: start: 20130911
  4. TAXOTERE [Concomitant]
  5. FRAGMIN [Concomitant]
     Indication: ANTICOAGULANT THERAPY
     Dosage: AT NIGHT FOR 3 MONTHS
     Route: 065
     Dates: start: 20131009
  6. ALPRAZOLAM [Concomitant]
     Indication: ANXIETY
     Route: 048
  7. LORATADINE [Concomitant]
     Route: 048
  8. CARBOPLATIN [Concomitant]
     Indication: BREAST CANCER
     Route: 042
     Dates: start: 20130911
  9. ANASTROZOLE [Concomitant]
     Route: 048
     Dates: start: 201310, end: 20131018
  10. SIMVASTATIN [Concomitant]
     Indication: BLOOD CHOLESTEROL INCREASED
     Route: 048

REACTIONS (8)
  - Chest pain [Recovered/Resolved]
  - Drug intolerance [Unknown]
  - Alopecia [Not Recovered/Not Resolved]
  - Pyrexia [Unknown]
  - Fatigue [Recovered/Resolved]
  - Pulmonary thrombosis [Unknown]
  - Vision blurred [Recovered/Resolved]
  - Feeling abnormal [Recovered/Resolved with Sequelae]
